FAERS Safety Report 9714843 (Version 3)
Quarter: 2014Q3

REPORT INFORMATION
  Report Type: Spontaneous
  Country: JP (occurrence: None)
  Receive Date: 20131125
  Receipt Date: 20140708
  Transmission Date: 20150326
  Serious: Yes (Hospitalization)
  Sender: FDA-Public Use
  Company Number: JP-013729

PATIENT
  Age: 74 Year
  Sex: Male
  Weight: 50 kg

DRUGS (9)
  1. SENNOSIDE [Concomitant]
     Active Substance: SENNOSIDES
  2. DEGARELIX [Suspect]
     Active Substance: DEGARELIX
     Indication: PROSTATE CANCER
     Route: 058
     Dates: start: 20121227, end: 20121227
  3. PRAZAXA [Concomitant]
     Active Substance: DABIGATRAN ETEXILATE MESYLATE
  4. FLIVAS [Concomitant]
     Active Substance: NAFTOPIDIL
  5. EVIPROSTAT [Concomitant]
     Active Substance: CHIMAPHILA UMBELLATA\MANGANESE CHLORIDE\POPULUS TREMULOIDES\SODIUM TAUROCHOLATE
  6. CASODEX [Concomitant]
     Active Substance: BICALUTAMIDE
  7. VASOLAN [Concomitant]
     Active Substance: VERAPAMIL HYDROCHLORIDE
  8. GASTER [Concomitant]
     Active Substance: FAMOTIDINE
  9. MUCOSTA [Concomitant]
     Active Substance: REBAMIPIDE

REACTIONS (8)
  - Intentional product misuse [None]
  - Injection site cellulitis [None]
  - C-reactive protein increased [None]
  - Injection site erythema [None]
  - White blood cell count increased [None]
  - Pyrexia [None]
  - Injection site swelling [None]
  - Injection site pain [None]

NARRATIVE: CASE EVENT DATE: 20130619
